FAERS Safety Report 6398988-5 (Version None)
Quarter: 2009Q4

REPORT INFORMATION
  Report Type: 
  Country: None (occurrence: None)
  Receive Date: 20091013
  Receipt Date: 20091005
  Transmission Date: 20100525
  Serious: Yes (Other)
  Sender: FDA-Public Use
  Company Number: CA-AMGEN-KDL363486

PATIENT
  Sex: Female

DRUGS (1)
  1. ENBREL [Suspect]
     Indication: PSORIASIS
     Dates: start: 20070914, end: 20090701

REACTIONS (3)
  - BLADDER OPERATION [None]
  - PSORIASIS [None]
  - THERAPEUTIC RESPONSE DECREASED [None]
